FAERS Safety Report 12461211 (Version 1)
Quarter: 2016Q2

REPORT INFORMATION
  Report Type: Spontaneous
  Country: US (occurrence: US)
  Receive Date: 20160613
  Receipt Date: 20160613
  Transmission Date: 20160815
  Serious: No
  Sender: FDA-Public Use
  Company Number: US-US WORLDMEDS, LLC-USW201604-000306

PATIENT
  Sex: Female

DRUGS (10)
  1. MYRBETRIQ [Concomitant]
     Active Substance: MIRABEGRON
  2. ALENDRONATE [Concomitant]
     Active Substance: ALENDRONATE SODIUM
  3. CAPOTEN [Concomitant]
     Active Substance: CAPTOPRIL
  4. TRIMETHOBENZAMIDE [Concomitant]
     Active Substance: TRIMETHOBENZAMIDE
  5. CARBIDOPA. [Concomitant]
     Active Substance: CARBIDOPA
  6. APOKYN [Suspect]
     Active Substance: APOMORPHINE HYDROCHLORIDE
     Indication: DYSTONIA
  7. AZILECT [Concomitant]
     Active Substance: RASAGILINE MESYLATE
  8. BARE BACK AND BODY TYLENOL [Concomitant]
  9. GABAPENTIN. [Concomitant]
     Active Substance: GABAPENTIN
  10. VITAMIN D3 [Concomitant]
     Active Substance: CHOLECALCIFEROL

REACTIONS (3)
  - Somnolence [Recovered/Resolved]
  - Drug ineffective for unapproved indication [Unknown]
  - Hypotension [Recovered/Resolved]
